FAERS Safety Report 20320513 (Version 1)
Quarter: 2022Q1

REPORT INFORMATION
  Report Type: Spontaneous
  Country: US (occurrence: US)
  Receive Date: 20220111
  Receipt Date: 20220111
  Transmission Date: 20220424
  Serious: No
  Sender: FDA-Public Use
  Company Number: US-GLENMARK PHARMACEUTICALS-2021GMK069110

PATIENT

DRUGS (1)
  1. CLOBETASOL PROPIONATE [Suspect]
     Active Substance: CLOBETASOL PROPIONATE
     Indication: Pruritus
     Dosage: UNK UNK, OD, APPLY ONCE A DAY ON SCALP
     Route: 061

REACTIONS (3)
  - Inappropriate schedule of product administration [Unknown]
  - Intentional product use issue [Unknown]
  - Product communication issue [Unknown]
